FAERS Safety Report 8599373 (Version 2)
Quarter: 2016Q2

REPORT INFORMATION
  Report Type: Spontaneous
  Country: US (occurrence: US)
  Receive Date: 20120605
  Receipt Date: 20160415
  Transmission Date: 20160815
  Serious: Yes (Hospitalization, Congenital Anomaly, Other)
  Sender: FDA-Public Use
  Company Number: US-GLAXOSMITHKLINE-A0980087A

PATIENT
  Age: 0 Day
  Sex: Male
  Weight: 3 kg

DRUGS (4)
  1. TRANXENE T-TAB [Concomitant]
     Active Substance: CLORAZEPATE DIPOTASSIUM
     Dates: end: 19960917
  2. KLONOPIN [Concomitant]
     Active Substance: CLONAZEPAM
  3. PAXIL [Suspect]
     Active Substance: PAROXETINE HYDROCHLORIDE
     Indication: ANXIETY
  4. PAXIL [Suspect]
     Active Substance: PAROXETINE HYDROCHLORIDE
     Indication: DEPRESSION
     Route: 064
     Dates: end: 199610

REACTIONS (3)
  - Foetal exposure during pregnancy [Unknown]
  - Congenital choroid plexus cyst [Unknown]
  - Pyloric stenosis [Unknown]

NARRATIVE: CASE EVENT DATE: 19970510
